FAERS Safety Report 11050568 (Version 1)
Quarter: 2015Q2

REPORT INFORMATION
  Report Type: Spontaneous
  Country: US (occurrence: None)
  Receive Date: 20150420
  Receipt Date: 20150420
  Transmission Date: 20150821
  Serious: No
  Sender: FDA-Public Use
  Company Number: None

PATIENT
  Age: 39 Year
  Sex: Female
  Weight: 94.8 kg

DRUGS (6)
  1. PROVERA [Suspect]
     Active Substance: MEDROXYPROGESTERONE ACETATE
     Indication: HAEMORRHAGE
     Route: 048
     Dates: start: 20150109, end: 20150419
  2. BENADRYL [Concomitant]
     Active Substance: DIPHENHYDRAMINE HYDROCHLORIDE
  3. PROVERA [Suspect]
     Active Substance: MEDROXYPROGESTERONE ACETATE
     Indication: UTERINE LEIOMYOMA
     Route: 048
     Dates: start: 20150109, end: 20150419
  4. DEPO-PROVERA [Suspect]
     Active Substance: MEDROXYPROGESTERONE ACETATE
     Indication: HAEMORRHAGE
     Dosage: SHOT, ONCE AT THE OFFICE, INTO A VEIN
  5. DEPO-PROVERA [Suspect]
     Active Substance: MEDROXYPROGESTERONE ACETATE
     Indication: UTERINE LEIOMYOMA
     Dosage: SHOT, ONCE AT THE OFFICE, INTO A VEIN
  6. DEPO POVERA SHOT [Concomitant]

REACTIONS (8)
  - Urticaria [None]
  - Drug ineffective [None]
  - Swelling [None]
  - Headache [None]
  - Chest pain [None]
  - Pain [None]
  - Hypertension [None]
  - Drug dose omission [None]

NARRATIVE: CASE EVENT DATE: 20150109
